FAERS Safety Report 18448920 (Version 2)
Quarter: 2023Q2

REPORT INFORMATION
  Report Type: Report from Study
  Country: BR (occurrence: BR)
  Receive Date: 20201030
  Receipt Date: 20230403
  Transmission Date: 20230722
  Serious: Yes (Other)
  Sender: FDA-Public Use
  Company Number: BR-JNJFOC-20201039503

PATIENT
  Age: 64 Year
  Sex: Female
  Weight: 73 kg

DRUGS (2)
  1. STELARA [Suspect]
     Active Substance: USTEKINUMAB
     Indication: Psoriasis
     Route: 058
     Dates: start: 20200204
  2. STELARA [Suspect]
     Active Substance: USTEKINUMAB
     Route: 058
     Dates: start: 20200317

REACTIONS (10)
  - Arthralgia [Unknown]
  - COVID-19 [Unknown]
  - Keloid scar [Unknown]
  - Alopecia [Unknown]
  - Drug ineffective [Unknown]
  - Skin fissures [Unknown]
  - Nail disorder [Unknown]
  - Skin discolouration [Unknown]
  - Skin wound [Unknown]
  - Skin hypopigmentation [Unknown]

NARRATIVE: CASE EVENT DATE: 20201001
